APPROVED DRUG PRODUCT: ECONAZOLE NITRATE
Active Ingredient: ECONAZOLE NITRATE
Strength: 1%
Dosage Form/Route: CREAM;TOPICAL
Application: A076574 | Product #001
Applicant: ENCUBE ETHICALS PRIVATE LTD
Approved: Dec 17, 2004 | RLD: No | RS: No | Type: DISCN